FAERS Safety Report 5424995-2 (Version None)
Quarter: 2007Q3

REPORT INFORMATION
  Report Type: 
  Country: None (occurrence: None)
  Receive Date: 20070822
  Receipt Date: 20070814
  Transmission Date: 20080115
  Serious: Yes (Hospitalization, Disabling, Other)
  Sender: FDA-Public Use
  Company Number: 163-21880-06120918

PATIENT
  Age: 67 Year
  Sex: Female

DRUGS (3)
  1. REVLIMID [Suspect]
     Indication: MULTIPLE MYELOMA
     Dosage: 10 MG TO 25 MG ORAL
     Route: 048
     Dates: start: 20060921, end: 20061219
  2. REVLIMID [Suspect]
     Dosage: 10 MG, 1 IN 1 D, ORAL
     Route: 048
     Dates: start: 20070201
  3. STEROIDS (STEROID ANTIBACTERIALS) [Concomitant]

REACTIONS (10)
  - CARDIAC DISORDER [None]
  - CATARACT [None]
  - CONSTIPATION [None]
  - DECREASED APPETITE [None]
  - DYSPHAGIA [None]
  - HYPOAESTHESIA [None]
  - NAUSEA [None]
  - PAIN IN EXTREMITY [None]
  - PARAESTHESIA [None]
  - PNEUMONIA [None]
